FAERS Safety Report 6182324-3 (Version None)
Quarter: 2009Q2

REPORT INFORMATION
  Report Type: 
  Country: None (occurrence: None)
  Receive Date: 20090505
  Receipt Date: 20090505
  Transmission Date: 20091009
  Serious: No
  Sender: FDA-Public Use
  Company Number: None

PATIENT
  Age: 67 Year
  Sex: Female
  Weight: 68.0396 kg

DRUGS (1)
  1. METOCLOPRAMIDE [Suspect]
     Indication: GASTROOESOPHAGEAL REFLUX DISEASE
     Dosage: 1 TABLET 2X PO
     Route: 048

REACTIONS (6)
  - DRUG EFFECT DECREASED [None]
  - DYSGRAPHIA [None]
  - DYSKINESIA [None]
  - STOMATITIS [None]
  - TOOTHACHE [None]
  - TREMOR [None]
